FAERS Safety Report 4963826-1 (Version None)
Quarter: 2006Q1

REPORT INFORMATION
  Report Type: 
  Country: None (occurrence: None)
  Receive Date: 20060330
  Receipt Date: 20060314
  Transmission Date: 20060701
  Serious: Yes (Other)
  Sender: FDA-Public Use
  Company Number: GBS050818213

PATIENT
  Age: 55 Year
  Sex: Female
  Weight: 89.1 kg

DRUGS (2)
  1. PROZAC [Suspect]
     Indication: DEPRESSION
     Dosage: 20 MG, ORAL
     Route: 048
     Dates: start: 20050625, end: 20050625
  2. CARBAMAZEPINE [Concomitant]

REACTIONS (6)
  - ANXIETY [None]
  - CHILLS [None]
  - DELUSION [None]
  - DRUG INTERACTION [None]
  - TREMOR [None]
  - VOMITING [None]
